FAERS Safety Report 15841249 (Version 3)
Quarter: 2019Q1

REPORT INFORMATION
  Report Type: Spontaneous
  Country: US (occurrence: US)
  Receive Date: 20190118
  Receipt Date: 20190222
  Transmission Date: 20190417
  Serious: No
  Sender: FDA-Public Use
  Company Number: US-ASTRAZENECA-2018SF71783

PATIENT
  Age: 28802 Day
  Sex: Female
  Weight: 79.4 kg

DRUGS (1)
  1. BYDUREON BCISE [Suspect]
     Active Substance: EXENATIDE
     Indication: TYPE 2 DIABETES MELLITUS
     Route: 058
     Dates: start: 20181227

REACTIONS (6)
  - Body height decreased [Unknown]
  - Stress [Unknown]
  - Injection site pain [Unknown]
  - Diarrhoea [Not Recovered/Not Resolved]
  - Product quality issue [Unknown]
  - Underdose [Not Recovered/Not Resolved]

NARRATIVE: CASE EVENT DATE: 20181227
